FAERS Safety Report 5708226-1 (Version None)
Quarter: 2008Q2

REPORT INFORMATION
  Report Type: 
  Country: None (occurrence: None)
  Receive Date: 20080417
  Receipt Date: 20080408
  Transmission Date: 20081010
  Serious: Yes (Other)
  Sender: FDA-Public Use
  Company Number: FR-BRISTOL-MYERS SQUIBB COMPANY-14152763

PATIENT
  Age: 33 Year
  Sex: Female

DRUGS (1)
  1. HOLOXAN [Suspect]
     Dosage: THERAPY DATE = 07-APR-2008.
     Dates: start: 20080407, end: 20080407

REACTIONS (4)
  - ABDOMINAL PAIN [None]
  - ACCIDENTAL EXPOSURE [None]
  - HEADACHE [None]
  - NAUSEA [None]
